FAERS Safety Report 5077456-7 (Version None)
Quarter: 2006Q3

REPORT INFORMATION
  Report Type: 
  Country: None (occurrence: None)
  Receive Date: 20060810
  Receipt Date: 20060303
  Transmission Date: 20061208
  Serious: No
  Sender: FDA-Public Use
  Company Number: US-GLAXOSMITHKLINE-A0596011A

PATIENT
  Age: 61 Year
  Sex: Female
  Weight: 69.1 kg

DRUGS (6)
  1. PAROXETINE HCL [Suspect]
     Indication: FIBROMYALGIA
     Dosage: 20MG PER DAY
     Route: 048
  2. LIPITOR [Concomitant]
  3. ZETIA [Concomitant]
  4. TRIAMTERENE AND HYDROCHLOROTHIAZIDE [Concomitant]
  5. SYNTHROID [Concomitant]
  6. PAXIL [Concomitant]
     Indication: DEPRESSION
     Route: 048

REACTIONS (2)
  - DRUG INEFFECTIVE [None]
  - NIGHTMARE [None]
